FAERS Safety Report 7074075-8 (Version None)
Quarter: 2010Q4

REPORT INFORMATION
  Report Type: 
  Country: None (occurrence: None)
  Receive Date: 20101029
  Receipt Date: 20101018
  Transmission Date: 20110411
  Serious: Yes (Other)
  Sender: FDA-Public Use
  Company Number: US-PFIZER INC-2010091412

PATIENT
  Sex: Male
  Weight: 87.075 kg

DRUGS (16)
  1. DILANTIN-125 [Suspect]
     Indication: EPILEPSY
     Dosage: 100 MG, UNK
     Dates: start: 20090201
  2. CLONAZEPAM [Concomitant]
     Indication: CONVULSION
     Dosage: UNK
  3. PLAVIX [Concomitant]
     Dosage: UNK
  4. ISOSORBIDE [Concomitant]
     Dosage: UNK
  5. NITROGLYCERIN [Concomitant]
     Dosage: UNK
  6. COZAAR [Concomitant]
     Dosage: UNK
  7. ADVAIR DISKUS 100/50 [Concomitant]
     Dosage: UNK
  8. SPIRIVA [Concomitant]
     Dosage: UNK
  9. PAXIL [Concomitant]
     Dosage: UNK
  10. NIASPAN [Concomitant]
  11. SIMVASTATIN [Concomitant]
     Dosage: UNK
  12. LACTULOSE [Concomitant]
     Dosage: UNK
  13. ZOLOFT [Concomitant]
     Dosage: UNK
  14. VALIUM [Concomitant]
     Dosage: UNK
  15. DARVOCET [Concomitant]
     Dosage: UNK
  16. MELOXICAM [Concomitant]
     Indication: NEURALGIA
     Dosage: UNK

REACTIONS (34)
  - AMNESIA [None]
  - ANGIOPLASTY [None]
  - ANTICONVULSANT DRUG LEVEL DECREASED [None]
  - ARTERIAL OCCLUSIVE DISEASE [None]
  - ATRIAL SEPTAL DEFECT [None]
  - BACK PAIN [None]
  - CARDIAC OPERATION [None]
  - CEREBROVASCULAR ACCIDENT [None]
  - CEREBROVASCULAR DISORDER [None]
  - CHRONIC OBSTRUCTIVE PULMONARY DISEASE [None]
  - COGNITIVE DISORDER [None]
  - COORDINATION ABNORMAL [None]
  - CORONARY ARTERY DISEASE [None]
  - DIABETES MELLITUS [None]
  - DUODENAL OBSTRUCTION [None]
  - EPILEPSY [None]
  - FALL [None]
  - GASTRIC INFECTION [None]
  - GINGIVAL DISORDER [None]
  - HEADACHE [None]
  - HYPERLIPIDAEMIA [None]
  - HYPERSOMNIA [None]
  - HYPERTENSION [None]
  - IRRITABLE BOWEL SYNDROME [None]
  - LIMB INJURY [None]
  - MENTAL IMPAIRMENT [None]
  - PAIN [None]
  - PHOTOSENSITIVITY REACTION [None]
  - SENSATION OF FOREIGN BODY [None]
  - STENT PLACEMENT [None]
  - SWELLING FACE [None]
  - TRANSIENT ISCHAEMIC ATTACK [None]
  - VENTRICULAR HYPERTROPHY [None]
  - WEIGHT DECREASED [None]
